FAERS Safety Report 7592056-2 (Version None)
Quarter: 2011Q3

REPORT INFORMATION
  Report Type: 
  Country: None (occurrence: None)
  Receive Date: 20110705
  Receipt Date: 20110705
  Transmission Date: 20111222
  Serious: Yes (Other)
  Sender: FDA-Public Use
  Company Number: None

PATIENT
  Age: 23 Year
  Sex: Female
  Weight: 58.0604 kg

DRUGS (1)
  1. CIPROFLOXACIN [Suspect]
     Indication: DIARRHOEA
     Dosage: 500MG BID PO
     Route: 048
     Dates: start: 20110607, end: 20110610

REACTIONS (5)
  - TREMOR [None]
  - ANXIETY [None]
  - NIGHTMARE [None]
  - SUICIDAL IDEATION [None]
  - ABNORMAL DREAMS [None]
